FAERS Safety Report 14824375 (Version 3)
Quarter: 2018Q2

REPORT INFORMATION
  Report Type: Report from Study
  Country: US (occurrence: US)
  Receive Date: 20180429
  Receipt Date: 20180530
  Transmission Date: 20180711
  Serious: No
  Sender: FDA-Public Use
  Company Number: US-009507513-1804USA012469

PATIENT
  Age: 23 Year
  Sex: Female
  Weight: 51.25 kg

DRUGS (2)
  1. IMPLANON [Suspect]
     Active Substance: ETONOGESTREL
     Dosage: 68 MG ONE IMPLANT, UNK
     Route: 059
     Dates: start: 20180426, end: 20180426
  2. IMPLANON [Suspect]
     Active Substance: ETONOGESTREL
     Dosage: 68 MG ONE IMPLANT, UNK
     Route: 059
     Dates: start: 20180426

REACTIONS (3)
  - Device difficult to use [Recovered/Resolved]
  - No adverse event [Unknown]
  - Product quality issue [Unknown]

NARRATIVE: CASE EVENT DATE: 20180426
